FAERS Safety Report 5346225-2 (Version None)
Quarter: 2007Q2

REPORT INFORMATION
  Report Type: 
  Country: None (occurrence: None)
  Receive Date: 20070605
  Receipt Date: 20070529
  Transmission Date: 20071010
  Serious: Yes (Hospitalization)
  Sender: FDA-Public Use
  Company Number: AU-ABBOTT-07P-008-0369633-00

PATIENT
  Sex: Male
  Weight: 88 kg

DRUGS (6)
  1. MAVIK [Suspect]
     Indication: CARDIAC FAILURE CONGESTIVE
     Route: 048
     Dates: end: 20061215
  2. LUMIRACOXIB [Interacting]
     Indication: GOUT
     Dates: start: 20061211, end: 20061215
  3. CARVEDILOL [Concomitant]
     Indication: DRUG USE FOR UNKNOWN INDICATION
  4. ALLOPURINOL [Concomitant]
     Indication: DRUG USE FOR UNKNOWN INDICATION
  5. PREGABALIN [Concomitant]
     Indication: DRUG USE FOR UNKNOWN INDICATION
  6. PANTOPRAZOLE SODIUM [Concomitant]
     Indication: DRUG USE FOR UNKNOWN INDICATION

REACTIONS (3)
  - CARDIAC FAILURE CONGESTIVE [None]
  - DRUG INTERACTION [None]
  - RENAL FAILURE ACUTE [None]
